FAERS Safety Report 17027376 (Version 1)
Quarter: 2019Q4

REPORT INFORMATION
  Report Type: Spontaneous
  Country: US (occurrence: US)
  Receive Date: 20191113
  Receipt Date: 20191113
  Transmission Date: 20200122
  Serious: No
  Sender: FDA-Public Use
  Company Number: US-TEVA-2019-US-1134478

PATIENT
  Sex: Female

DRUGS (1)
  1. CLONIDINE TDS 0.2MG/D TEVA [Suspect]
     Active Substance: CLONIDINE
     Indication: HYPERTENSION
     Dosage: STRENGTH: 0.2 MG / DAY; STARTED 8 MONTHS AGO; 2 PER WEEK
     Route: 062

REACTIONS (2)
  - Drug ineffective [Unknown]
  - Dry mouth [Unknown]
